FAERS Safety Report 7253121-2 (Version None)
Quarter: 2011Q1

REPORT INFORMATION
  Report Type: 
  Country: None (occurrence: None)
  Receive Date: 20110129
  Receipt Date: 20100126
  Transmission Date: 20110831
  Serious: No
  Sender: FDA-Public Use
  Company Number: US-ABBOTT-10P-163-0622649-00

PATIENT
  Sex: Female
  Weight: 89.438 kg

DRUGS (5)
  1. HUMIRA [Suspect]
     Indication: PSORIASIS
  2. VITAMIN D [Suspect]
     Indication: VITAMIN D DECREASED
     Dates: start: 20100114
  3. METHOTREXATE [Concomitant]
     Indication: PRODUCT USED FOR UNKNOWN INDICATION
  4. FOLIC ACID [Concomitant]
     Indication: PRODUCT USED FOR UNKNOWN INDICATION
  5. HUMIRA [Suspect]
     Indication: PSORIATIC ARTHROPATHY
     Route: 058
     Dates: start: 20091115

REACTIONS (3)
  - MUSCULAR WEAKNESS [None]
  - PAIN IN EXTREMITY [None]
  - VITAMIN D DECREASED [None]
